FAERS Safety Report 6187868-6 (Version None)
Quarter: 2009Q2

REPORT INFORMATION
  Report Type: 
  Country: None (occurrence: None)
  Receive Date: 20090513
  Receipt Date: 20090506
  Transmission Date: 20091009
  Serious: Yes (Death, Hospitalization)
  Sender: FDA-Public Use
  Company Number: US-JNJFOC-20090501539

PATIENT
  Age: 10 Year
  Sex: Female

DRUGS (5)
  1. PARACETAMOL [Suspect]
     Route: 048
  2. PARACETAMOL [Suspect]
     Indication: INFLUENZA
     Dosage: REPETITITVE DOSES
     Route: 048
  3. EXTRA STRENGTH TYLENOL [Suspect]
  4. EXTRA STRENGTH TYLENOL [Suspect]
     Indication: INFLUENZA
     Dosage: REPETITIVE DOSES
  5. ALKA-SELTZER [Suspect]
     Indication: INFLUENZA
     Dosage: REPETITIVE DOSES

REACTIONS (10)
  - DIALYSIS [None]
  - DRUG ADMINISTRATION ERROR [None]
  - GRAND MAL CONVULSION [None]
  - HEPATIC NECROSIS [None]
  - HEPATOTOXICITY [None]
  - INFECTION [None]
  - MENTAL STATUS CHANGES [None]
  - OVERDOSE [None]
  - RENAL FAILURE ACUTE [None]
  - WRONG DRUG ADMINISTERED [None]
